FAERS Safety Report 9314487 (Version 1)
Quarter: 2013Q2

REPORT INFORMATION
  Report Type: Spontaneous
  Country: US (occurrence: US)
  Receive Date: 20130529
  Receipt Date: 20130529
  Transmission Date: 20140414
  Serious: No
  Sender: FDA-Public Use
  Company Number: US-PFIZER INC-2013161116

PATIENT
  Age: 24 Year
  Sex: Male
  Weight: 58.05 kg

DRUGS (1)
  1. ADVIL MIGRAINE [Suspect]
     Indication: HEADACHE
     Dosage: 200 MG, AS NEEDED
     Route: 048
     Dates: start: 201212

REACTIONS (1)
  - Vomiting [Not Recovered/Not Resolved]
